FAERS Safety Report 9120077 (Version 2)
Quarter: 2013Q1

REPORT INFORMATION
  Report Type: Spontaneous
  Country: MX (occurrence: MX)
  Receive Date: 20130226
  Receipt Date: 20130305
  Transmission Date: 20140127
  Serious: Yes (Death)
  Sender: FDA-Public Use
  Company Number: PHHY2013MX018421

PATIENT
  Age: 84 Year
  Sex: Female

DRUGS (2)
  1. RASILEZ HCT [Suspect]
     Indication: HYPERTENSION
     Dosage: 2 DF, DAILY
  2. EXFORGE [Suspect]
     Indication: HYPERTENSION
     Dosage: 1 (160 MG VAL, 5 MG AMLO), DAILY
     Route: 048

REACTIONS (1)
  - Renal failure [Fatal]
